FAERS Safety Report 8289047-5 (Version None)
Quarter: 2012Q2

REPORT INFORMATION
  Report Type: 
  Country: None (occurrence: None)
  Receive Date: 20120417
  Receipt Date: 20120406
  Transmission Date: 20120825
  Serious: Yes (Other)
  Sender: FDA-Public Use
  Company Number: CZ-JNJFOC-20120405170

PATIENT
  Sex: Female

DRUGS (3)
  1. DIPYRONE TAB [Concomitant]
     Indication: PROCEDURAL PAIN
     Route: 050
     Dates: start: 20120322
  2. TRAMADOL HCL [Suspect]
     Indication: PROCEDURAL PAIN
     Route: 048
     Dates: start: 20120322, end: 20120404
  3. XARELTO [Suspect]
     Indication: THROMBOSIS PROPHYLAXIS
     Route: 048
     Dates: start: 20120322

REACTIONS (3)
  - NAUSEA [None]
  - HYPOTENSION [None]
  - VOMITING [None]
